FAERS Safety Report 22647044 (Version 18)
Quarter: 2023Q4

REPORT INFORMATION
  Report Type: Report from Study
  Country: BG (occurrence: BG)
  Receive Date: 20230627
  Receipt Date: 20231228
  Transmission Date: 20240109
  Serious: Yes (Hospitalization, Other)
  Sender: FDA-Public Use
  Company Number: BG-AKCEA THERAPEUTICS, INC.-2023IS001509

PATIENT

DRUGS (27)
  1. TEGSEDI [Suspect]
     Active Substance: INOTERSEN SODIUM
     Indication: Hereditary neuropathic amyloidosis
     Dosage: 284 MILLIGRAM, QW
     Route: 065
     Dates: start: 20231130
  2. TEGSEDI [Suspect]
     Active Substance: INOTERSEN SODIUM
     Dosage: UNK UNK, QOW
     Route: 065
     Dates: start: 20231027, end: 20231115
  3. TEGSEDI [Suspect]
     Active Substance: INOTERSEN SODIUM
     Dosage: UNK UNK, QOW
     Route: 065
     Dates: start: 20231012
  4. TEGSEDI [Suspect]
     Active Substance: INOTERSEN SODIUM
     Dosage: 284 MILLIGRAM, QW
     Route: 058
     Dates: start: 20230329, end: 20231002
  5. TEGSEDI [Suspect]
     Active Substance: INOTERSEN SODIUM
     Dosage: 284 MILLIGRAM, QW
     Route: 058
     Dates: start: 20230329
  6. TEGSEDI [Suspect]
     Active Substance: INOTERSEN SODIUM
     Dosage: 284 MILLIGRAM, QW
     Route: 058
     Dates: start: 20230324
  7. RETINOL [Concomitant]
     Active Substance: RETINOL
     Indication: Product used for unknown indication
     Dosage: 2500 INTERNATIONAL UNIT, QD, CAPSULE
     Route: 065
  8. RENOVIA [Concomitant]
     Indication: Hypertension
     Dosage: 10 MILLIGRAM, BID
     Route: 065
  9. RENOVIA [Concomitant]
     Dosage: 10 MILLIGRAM, QD
     Route: 065
  10. ALLOPURINOL [Concomitant]
     Active Substance: ALLOPURINOL
     Indication: Product used for unknown indication
     Dosage: 100 MILLIGRAM, QD
     Route: 065
  11. ALLOPURINOL [Concomitant]
     Active Substance: ALLOPURINOL
     Indication: Gout
  12. PREGABALIN [Concomitant]
     Active Substance: PREGABALIN
     Indication: Epilepsy
     Dosage: 75 MILLIGRAM, BID
     Route: 065
  13. PREGABALIN [Concomitant]
     Active Substance: PREGABALIN
     Dosage: 75 MILLIGRAM BDT
     Route: 065
  14. AGAPURIN [Concomitant]
     Indication: Peripheral arterial occlusive disease
     Dosage: 400 MILLIGRAM, BID, 1 TABLET
     Route: 048
  15. AGAPURIN [Concomitant]
     Indication: Peripheral vascular disorder
  16. .ALPHA.-LIPOIC ACID [Concomitant]
     Active Substance: .ALPHA.-LIPOIC ACID
     Indication: Product used for unknown indication
     Dosage: 600 MILLIGRAM, MORNING
     Route: 048
  17. .ALPHA.-LIPOIC ACID [Concomitant]
     Active Substance: .ALPHA.-LIPOIC ACID
     Dosage: 600 MILLIGRAM HROD
     Route: 065
  18. SILODOSIN [Concomitant]
     Active Substance: SILODOSIN
     Indication: Benign prostatic hyperplasia
     Dosage: 8 MILLIGRAM, QDX7DAYS, EVENING
     Route: 065
  19. DIAB MR [Concomitant]
     Indication: Type 2 diabetes mellitus
     Dosage: 30 MILLIGRAM, 1 TABLET IN THE MORNING
     Route: 048
  20. PANTOPRAZOLE SODIUM [Concomitant]
     Active Substance: PANTOPRAZOLE SODIUM
     Indication: Gastrooesophageal reflux disease
     Dosage: 20 MILLIGRAM EVENING, PRN
     Route: 065
  21. TROMBEX [CLOPIDOGREL BISULFATE] [Concomitant]
     Indication: Product used for unknown indication
     Dosage: 75 MILLIGRAM, EVENING
     Route: 065
  22. FLEXID [FUSIDATE SODIUM] [Concomitant]
     Indication: Product used for unknown indication
     Dosage: 500 MILLIGRAM
     Route: 042
  23. PREGABALIN [Concomitant]
     Active Substance: PREGABALIN
     Indication: Neuralgia
     Dosage: 75 MILLIGRAM, BID, 1 CAPSULE
     Route: 048
  24. THIOCTACID HR [Concomitant]
     Indication: Diabetic neuropathy
     Dosage: 600 MILLIGRAM, QD, 1 TABLET IN THE MORNING
     Route: 065
  25. PANTOPRAZOLE SODIUM [Concomitant]
     Active Substance: PANTOPRAZOLE SODIUM
     Indication: Gastrooesophageal reflux disease
     Dosage: 40 MILLIGRAM, PRN
     Route: 065
  26. TORSEMIDE [Concomitant]
     Active Substance: TORSEMIDE
     Indication: Oedema
     Dosage: 10 MILLIGRAM, QAM
     Route: 065
  27. DUTASTERIDE\TAMSULOSIN HYDROCHLORIDE [Concomitant]
     Active Substance: DUTASTERIDE\TAMSULOSIN HYDROCHLORIDE
     Indication: Product used for unknown indication
     Route: 065

REACTIONS (65)
  - Haemorrhage [Unknown]
  - Glomerulonephritis chronic [Unknown]
  - Haematuria [Recovered/Resolved]
  - Joint swelling [Unknown]
  - Hypoaesthesia [Unknown]
  - Haematuria [Recovering/Resolving]
  - Anaemia [Unknown]
  - Bladder disorder [Unknown]
  - Kidney enlargement [Unknown]
  - Lithiasis [Unknown]
  - Hydronephrosis [Recovered/Resolved]
  - Urethral stenosis [Unknown]
  - Dysuria [Unknown]
  - Haematuria [Recovering/Resolving]
  - Blood uric acid increased [Unknown]
  - Oedema peripheral [Unknown]
  - Polyneuropathy [Unknown]
  - Muscular weakness [Unknown]
  - Red cell distribution width increased [Unknown]
  - Mean platelet volume increased [Unknown]
  - Red blood cell sedimentation rate increased [Unknown]
  - Areflexia [Unknown]
  - Hyperpathia [Unknown]
  - Sensory disturbance [Unknown]
  - Blood creatinine increased [Recovered/Resolved]
  - Renal neoplasm [Unknown]
  - Haematuria [Recovered/Resolved]
  - Chills [Recovered/Resolved]
  - Prostatitis [Unknown]
  - Red blood cells urine positive [Unknown]
  - White blood cells urine positive [Unknown]
  - Crystal urine present [Recovered/Resolved]
  - Haemoglobin urine present [Unknown]
  - Urinary sediment abnormal [Unknown]
  - Inflammation [Unknown]
  - Red blood cell count decreased [Unknown]
  - Haemoglobin decreased [Unknown]
  - Haematocrit decreased [Unknown]
  - Mean platelet volume increased [Recovered/Resolved]
  - Platelet distribution width increased [Recovered/Resolved]
  - Blood urea increased [Unknown]
  - Vitamin B12 increased [Unknown]
  - C-reactive protein increased [Unknown]
  - Suprapubic pain [Unknown]
  - Platelet count decreased [Recovered/Resolved]
  - Lymphocyte count decreased [Unknown]
  - Mean cell haemoglobin concentration decreased [Recovered/Resolved]
  - Prothrombin time prolonged [Unknown]
  - Blood glucose increased [Recovered/Resolved]
  - Blood potassium increased [Recovered/Resolved]
  - Glomerular filtration rate decreased [Unknown]
  - Urinary tract infection enterococcal [Recovered/Resolved]
  - Intentional product misuse [Not Recovered/Not Resolved]
  - Protein urine present [Unknown]
  - Urine protein/creatinine ratio increased [Unknown]
  - Creatinine urine decreased [Unknown]
  - Pollakiuria [Not Recovered/Not Resolved]
  - Dysuria [Not Recovered/Not Resolved]
  - Crystal urine present [Unknown]
  - Urinary tract disorder [Unknown]
  - Hydroureter [Unknown]
  - Nocturia [Unknown]
  - Chromaturia [Unknown]
  - Blood pressure increased [Recovered/Resolved]
  - Renal cyst [Unknown]

NARRATIVE: CASE EVENT DATE: 20230517
